FAERS Safety Report 23256908 (Version 1)
Quarter: 2023Q4

REPORT INFORMATION
  Report Type: Spontaneous
  Country: US (occurrence: US)
  Receive Date: 20231204
  Receipt Date: 20231204
  Transmission Date: 20240110
  Serious: Yes (Other)
  Sender: FDA-Public Use
  Company Number: US-PROCTER_AND_GAMBLE-PH23010618

PATIENT
  Age: 30 Year
  Sex: Female

DRUGS (1)
  1. VICKS DAYQUIL COLD AND FLU [Suspect]
     Active Substance: ACETAMINOPHEN\DEXTROMETHORPHAN HYDROBROMIDE\PHENYLEPHRINE HYDROCHLORIDE
     Indication: Nasopharyngitis
     Dosage: 1 CAPSUL, 1 ONLY
     Route: 048
     Dates: start: 20231121, end: 20231121

REACTIONS (8)
  - Choking [Recovered/Resolved]
  - Dyspnoea [Recovered/Resolved]
  - Oesophageal pain [Recovering/Resolving]
  - Chest pain [Recovering/Resolving]
  - Petechiae [Recovering/Resolving]
  - Foreign body in throat [Unknown]
  - Product use complaint [Unknown]
  - Product size issue [Unknown]

NARRATIVE: CASE EVENT DATE: 20231121
